FAERS Safety Report 19239691 (Version 7)
Quarter: 2021Q4

REPORT INFORMATION
  Report Type: Report from Study
  Country: US (occurrence: US)
  Receive Date: 20210510
  Receipt Date: 20211222
  Transmission Date: 20220303
  Serious: No
  Sender: FDA-Public Use
  Company Number: NVSC2021US098096

PATIENT
  Sex: Male

DRUGS (1)
  1. ENTRESTO [Suspect]
     Active Substance: SACUBITRIL\VALSARTAN
     Indication: Product used for unknown indication
     Dosage: UNK
     Route: 065

REACTIONS (12)
  - Weight increased [Unknown]
  - Peripheral swelling [Unknown]
  - Genital swelling [Unknown]
  - Arthralgia [Unknown]
  - Neuralgia [Unknown]
  - Throat clearing [Unknown]
  - Dust allergy [Unknown]
  - Nasopharyngitis [Unknown]
  - Decreased appetite [Unknown]
  - Oropharyngeal pain [Unknown]
  - Head discomfort [Unknown]
  - Weight decreased [Unknown]
